FAERS Safety Report 15634085 (Version 1)
Quarter: 2018Q4

REPORT INFORMATION
  Report Type: Spontaneous
  Country: CN (occurrence: CN)
  Receive Date: 20181119
  Receipt Date: 20181119
  Transmission Date: 20190205
  Serious: Yes (Other)
  Sender: FDA-Public Use
  Company Number: CN-OTSUKA-2018_036340

PATIENT
  Age: 24 Year
  Sex: Male

DRUGS (1)
  1. SAMSCA [Suspect]
     Active Substance: TOLVAPTAN
     Indication: POLYURIA
     Dosage: 15 MG, UNK
     Route: 065
     Dates: start: 20180911, end: 20180913

REACTIONS (2)
  - Product use in unapproved indication [Unknown]
  - Hypokalaemia [Recovering/Resolving]
